FAERS Safety Report 9744348 (Version 4)
Quarter: 2014Q1

REPORT INFORMATION
  Report Type: Spontaneous
  Country: DE (occurrence: DE)
  Receive Date: 20131210
  Receipt Date: 20140320
  Transmission Date: 20141002
  Serious: Yes (Disabling, Other)
  Sender: FDA-Public Use
  Company Number: DE-UCBSA-038485

PATIENT
  Age: 37 Year
  Sex: Female

DRUGS (60)
  1. KEPPRA [Suspect]
     Indication: EPILEPSY
     Dates: start: 20010813
  2. KEPPRA [Suspect]
     Indication: EPILEPSY
     Dosage: STRENGTH: 500 MG (0.5 IN MORNING AND 0.5 IN EVENING)
     Dates: start: 20020705
  3. KEPPRA [Suspect]
     Indication: EPILEPSY
     Dosage: (MAXIMUM 3000 MG)
     Dates: start: 20050520
  4. KEPPRA [Suspect]
     Indication: EPILEPSY
     Dosage: STRENGTH: 500 MG (0.5 IN THE MORNING AND 0.5 EVENING)
     Dates: start: 20060508, end: 200605
  5. KEPPRA [Suspect]
     Indication: EPILEPSY
     Dosage: STRENGTH: 500 MG, 250 TO BE TAPERED
     Dates: start: 20060515, end: 2006
  6. KEPPRA [Suspect]
     Indication: EPILEPSY
     Dosage: STRENGTH: 500 MG
     Dates: start: 20060716
  7. KEPPRA [Suspect]
     Indication: EPILEPSY
     Dosage: 3000 MG MAXIMUM)
     Dates: start: 20090710, end: 200907
  8. KEPPRA [Suspect]
     Indication: EPILEPSY
     Dosage: STRENGTH: 500 MG (MAXIMUM 3000 MG)
     Dates: start: 20090720
  9. KEPPRA [Suspect]
     Indication: EPILEPSY
     Dosage: STRENGTH: 500 MG
     Dates: start: 20130213, end: 2013
  10. KEPPRA [Suspect]
     Indication: EPILEPSY
     Dosage: STRENGTH: 500 MG (MAXIMUM 3000 MG)
     Dates: start: 20130901
  11. MYLEPSINUM [Concomitant]
  12. LAMICTAL [Concomitant]
     Dosage: UNKNOWN DOSE
  13. LAMICTAL [Concomitant]
     Dosage: TO BE UPTITRATED
     Dates: start: 20010922
  14. LAMICTAL [Concomitant]
     Dosage: STRENGTH: 50 MG (2 IN EVENING)
     Dates: start: 20020121, end: 2002
  15. LAMICTAL [Concomitant]
     Dosage: STRENGTH: 100 MG (1.5 IN MORNING AND 1.75 IN EVENING)
     Dates: start: 20020628, end: 2002
  16. LAMICTAL [Concomitant]
     Dosage: STRENGTH: 100 MG (1.25 IN MORNING AND 1.25 IN EVENING)
     Dates: start: 20020705
  17. LAMICTAL [Concomitant]
     Dosage: STRENGTH: 100 MG (1.25 IN MORNING AND 1.75 IN EVENING)
     Dates: start: 20030425, end: 200304
  18. LAMICTAL [Concomitant]
     Dosage: STRENGTH: 100 MG (1.25 MORNING AND 1.5 IN EVENING)
     Dates: start: 20030429
  19. LAMICTAL [Concomitant]
     Dosage: STRENGTH: 100 MG (1 IN MORNING AND 1 IN EVENING)
     Dates: start: 20050520, end: 2005
  20. LAMICTAL [Concomitant]
     Dosage: STRENGTH: 100 MG (1.25 MORNING AND 1.25 IN EVENING)
     Dates: start: 20050728
  21. LAMICTAL [Concomitant]
     Dosage: STRENGTH: 100 MG (1.25 IN MORNING AND 1.25 IN EVENING)
     Dates: start: 20060501, end: 200605
  22. LAMICTAL [Concomitant]
     Dosage: STRENGTH: 100 MG (1 IN MORNING AND 1.25 IN EVENING)
     Dates: start: 20060529, end: 2006
  23. LAMICTAL [Concomitant]
     Dosage: STRENGTH: 100 MG (1 IN MORNING AND 1 IN EVENING)
     Dates: start: 20060604, end: 200606
  24. LAMICTAL [Concomitant]
     Dosage: STRENGTH: 100 MG (1.25 IN MORNING AND 1.25 IN EVENING)
     Dates: start: 20060704, end: 2006
  25. LAMICTAL [Concomitant]
     Dosage: STRENGTH: 100 MG (1 IN MORNING AND 1.25 IN EVENING)
     Dates: start: 20061120
  26. LAMICTAL [Concomitant]
     Dosage: STRENGTH: 100 MG (1 IN MORNING AND 1 IN EVENING)
     Dates: start: 20070110
  27. LAMICTAL [Concomitant]
     Dosage: STRENGTH: 100 MG (1 IN MORNING AND 0.75 IN EVENING)
     Dates: start: 20111010
  28. LAMICTAL [Concomitant]
     Dosage: STRENGTH: 100 MG (1 IN MORNING AND 1 IN EVENING)
     Dates: start: 20120206, end: 20120213
  29. LAMICTAL [Concomitant]
     Dosage: STRENGTH: 125 MG (1 IN MORNING AND 1 IN EVENING)
     Dates: start: 20130901
  30. TOPAMAX [Concomitant]
     Dosage: 1 IN MORNING AND 1 IN EVENING
     Dates: start: 20010328, end: 2001
  31. FRISIUM [Concomitant]
     Dosage: STRENGTH: 10 MG (0.5 IN MORNING AND 0.5 IN EVENING)
     Dates: start: 20010703
  32. MYLEPSINUM [Concomitant]
     Dosage: UNKNOWN DOSE
     Dates: start: 199805
  33. MYLEPSINUM [Concomitant]
     Dosage: STRENGTH: 250 MG (1 IN MORNING AND 1.5 IN EVENING)
     Dates: start: 20020628, end: 2002
  34. MYLEPSINUM [Concomitant]
     Dosage: STRENGTH: 250 MG (1 IN MO0RNING AND 1 IN EVENING)
     Dates: start: 20020705
  35. MYLEPSINUM [Concomitant]
     Dosage: STRENGTH: 250 MG (1 IN MO0RNING AND 1.5 IN EVENING)
     Dates: start: 20030101, end: 2003
  36. MYLEPSINUM [Concomitant]
     Dosage: STRENGTH: 250 MG (1 IN MORNING AND 1 IN EVENING)
     Dates: start: 20030425, end: 200304
  37. MYLEPSINUM [Concomitant]
     Dosage: STRENGTH: 250 MG (1 IN MORNING AND 1.5 IN EVENING)
     Dates: start: 20030429
  38. MYLEPSINUM [Concomitant]
     Dosage: STRENGTH: 250  MG (1 IN MORNING AND 1 IN EVENING)
     Dates: start: 20050520, end: 2005
  39. MYLEPSINUM [Concomitant]
     Dosage: STRENGTH: 250  MG (1 I N MORNING AND 1.5 IN EVENING)
     Dates: start: 20050728, end: 2006
  40. MYLEPSINUM [Concomitant]
     Dosage: STRENGTH: 250 MG (1 IN MORNING AND 1 IN EVENING)
     Dates: start: 20060515, end: 2006
  41. MYLEPSINUM [Concomitant]
     Dosage: STRENGTH: 250 MG (1 IN MORNING AND 1.5 IN EVENING)
     Dates: start: 20060627, end: 200607
  42. MYLEPSINUM [Concomitant]
     Dosage: STRENGTH: 250 MG (1.5 IN MORNING AND 1.5  IN EVENING)
     Dates: start: 20060727
  43. MYLEPSINUM [Concomitant]
     Dosage: STRENGTH: 250 MG (1 IN MORNINGA AND 1.5 IN EVENING)
     Dates: start: 20070326
  44. MYLEPSINUM [Concomitant]
     Dosage: STRENGTH: 250 MG (1 IN MORNING AND 2 IN EVENING)
     Dates: start: 20090720
  45. ZYPREXA [Concomitant]
     Indication: PSYCHIATRIC SYMPTOM
     Dosage: STRENGTH: 5 MG (1 IN EVENING)
     Dates: start: 20020628, end: 2003
  46. ZYPREXA [Concomitant]
     Indication: PSYCHIATRIC SYMPTOM
     Dosage: STRENGTH: 5 MG (0.5 IN EVENING`)
     Dates: start: 20030425
  47. ZYPREXA [Concomitant]
     Indication: PSYCHIATRIC SYMPTOM
     Dosage: STRENGTH: 10 MG (1 IN MORINING)
     Dates: start: 20040721
  48. DOCITON [Concomitant]
     Dosage: STRENGTH: 10 MG (3 IN MORNING, 3 IN EVENING AND 3 AT NIGHT)
     Dates: start: 20020628
  49. MADOPAR [Concomitant]
     Dosage: STRENGTH: 62.5 MG TO BE UPTITRATED (1 IN EVENING)
     Dates: start: 20030425
  50. ORFIRIL LONG [Concomitant]
     Dosage: STRENGTH: 300 MG (1 IN EVENING)
     Dates: start: 20060501, end: 200605
  51. ORFIRIL LONG [Concomitant]
     Dosage: STRENGTH: 500 MG TO BE SLOWLY UPTITRATED (1 IN EVENING)
     Dates: start: 20060508, end: 200605
  52. ORFIRIL LONG [Concomitant]
     Dosage: STRENGTH: 500 MG (1.6 IN EVENING)
     Dates: start: 20060515, end: 20060522
  53. ORFIRIL LONG [Concomitant]
     Dosage: STRENGTH: 300 MG (2 IN EVENING)
     Dates: start: 20060529, end: 20060604
  54. ORFIRIL LONG [Concomitant]
     Dosage: STRENGTH: 300 MG (1 IN EVENING)
     Dates: start: 20060627
  55. ERGENYL CHRONO [Concomitant]
     Dosage: STRENGTH: 300 MG (2 IN MORNING AND 2 IN EVENING)
     Dates: start: 199909
  56. ERGENYL CHRONO [Concomitant]
     Dosage: UNKNOWN DOSE
     Dates: start: 19910622
  57. NEBIVOLOL [Concomitant]
     Dosage: 1 IN MORNING
     Dates: start: 20090626
  58. NEBIVOLOL [Concomitant]
     Dosage: STRENGTH: 5 MG (0.25 MORNING AND 0.25 IN EVENING)
     Dates: start: 20130901
  59. DIAZEPAM [Concomitant]
  60. BELOC ZOK [Concomitant]

REACTIONS (7)
  - Neurodegenerative disorder [Unknown]
  - Convulsion [Unknown]
  - Femoral neck fracture [Unknown]
  - Adverse event [Unknown]
  - Stress [Unknown]
  - Weight decreased [Unknown]
  - Muscle twitching [Unknown]
